FAERS Safety Report 13958663 (Version 1)
Quarter: 2017Q3

REPORT INFORMATION
  Report Type: Spontaneous
  Country: US (occurrence: None)
  Receive Date: 20170911
  Receipt Date: 20170911
  Transmission Date: 20171128
  Serious: Yes (Hospitalization)
  Sender: FDA-Public Use
  Company Number: None

PATIENT
  Age: 29 Year
  Sex: Male

DRUGS (9)
  1. CAYSTON [Concomitant]
     Active Substance: AZTREONAM
  2. TOBI [Suspect]
     Active Substance: TOBRAMYCIN
     Indication: CYSTIC FIBROSIS
     Dosage: 112 MG, Q28D, INHALE
     Route: 055
  3. PULMOZYME [Suspect]
     Active Substance: DORNASE ALFA
     Indication: CYSTIC FIBROSIS
     Dosage: 1 MG UNKNOWN INHALE
     Route: 055
  4. LINEZOLID. [Concomitant]
     Active Substance: LINEZOLID
  5. PROAIR HFA [Concomitant]
     Active Substance: ALBUTEROL SULFATE
  6. CEFTAZIDIME. [Concomitant]
     Active Substance: CEFTAZIDIME
  7. OBLMOZYME [Concomitant]
  8. MULTI VIT [Concomitant]
  9. CREON [Concomitant]
     Active Substance: PANCRELIPASE AMYLASE\PANCRELIPASE LIPASE\PANCRELIPASE PROTEASE

REACTIONS (3)
  - Cystic fibrosis [None]
  - Drug dose omission [None]
  - Condition aggravated [None]

NARRATIVE: CASE EVENT DATE: 201708
